FAERS Safety Report 4300734-3 (Version None)
Quarter: 2004Q1

REPORT INFORMATION
  Report Type: 
  Country: None (occurrence: None)
  Receive Date: 20040218
  Receipt Date: 20040204
  Transmission Date: 20041129
  Serious: Yes (Other)
  Sender: FDA-Public Use
  Company Number: NSADSS2003024689

PATIENT
  Age: 43 Year
  Sex: Female
  Weight: 56.6996 kg

DRUGS (17)
  1. REMICADE [Suspect]
     Indication: OSTEOARTHRITIS
     Dosage: SEE IMAGE
     Route: 041
     Dates: start: 20020221, end: 20020221
  2. REMICADE [Suspect]
     Indication: OSTEOARTHRITIS
     Dosage: SEE IMAGE
     Route: 041
     Dates: start: 20020307, end: 20020307
  3. REMICADE [Suspect]
  4. CELEBREX [Concomitant]
  5. ARAVA [Concomitant]
  6. FOLIC ACID [Concomitant]
  7. LEVOTHYROXINE SODIUM [Concomitant]
  8. RELAFEN [Concomitant]
  9. PREDNISONE [Concomitant]
  10. ATARAX [Concomitant]
  11. CLONAZEPAM [Concomitant]
  12. SYNTHROID [Concomitant]
  13. TYLENOL [Concomitant]
  14. GLUCOSAMINE CONDROITIN (GLUCOSAMINE) [Concomitant]
  15. AMBIEN [Concomitant]
  16. PREDNISONE [Concomitant]
  17. MULTIVITAMIN (MULTIVITAMINS) [Concomitant]

REACTIONS (7)
  - BURNING SENSATION [None]
  - MIGRAINE [None]
  - PROTEIN TOTAL INCREASED [None]
  - RED BLOOD CELL SEDIMENTATION RATE INCREASED [None]
  - SCAR [None]
  - STEVENS-JOHNSON SYNDROME [None]
  - VISUAL FIELD DEFECT [None]
